FAERS Safety Report 23677670 (Version 1)
Quarter: 2024Q1

REPORT INFORMATION
  Report Type: Spontaneous
  Country: US (occurrence: US)
  Receive Date: 20240327
  Receipt Date: 20240327
  Transmission Date: 20240410
  Serious: Yes (Life-Threatening, Hospitalization, Other)
  Sender: FDA-Public Use
  Company Number: US-TAKEDA-2024TUS028291

PATIENT
  Age: 35 Year
  Sex: Female
  Weight: 52.154 kg

DRUGS (1)
  1. ENTYVIO [Suspect]
     Active Substance: VEDOLIZUMAB
     Indication: Crohn^s disease
     Dosage: UNK
     Route: 065

REACTIONS (6)
  - Seizure [Unknown]
  - Hydrocephalus [Unknown]
  - Nervous system cyst [Unknown]
  - Bell^s palsy [Unknown]
  - Craniofacial fracture [Unknown]
  - Loss of consciousness [Unknown]
